FAERS Safety Report 10657368 (Version 2)
Quarter: 2014Q4

REPORT INFORMATION
  Report Type: Spontaneous
  Country: JP (occurrence: None)
  Receive Date: 20141215
  Receipt Date: 20141222
  Transmission Date: 20150529
  Serious: Yes (Other)
  Sender: FDA-Public Use
  Company Number: 2014JP010849

PATIENT
  Sex: Female
  Weight: 54 kg

DRUGS (10)
  1. ALOXI [Suspect]
     Active Substance: PALONOSETRON HYDROCHLORIDE
     Indication: PROPHYLAXIS OF NAUSEA AND VOMITING
     Dosage: 0.75 MG, SINGLE, IV DRIP
     Route: 041
     Dates: start: 20141126, end: 20141126
  2. ZANTAC [Concomitant]
     Active Substance: RANITIDINE HYDROCHLORIDE
  3. NIFEDIPIN (NIFEDIPINE) [Concomitant]
  4. SENNOSIDE (SENNOSIDE A+B CALCIUM) [Concomitant]
     Active Substance: SENNOSIDES
  5. URSODEOXYCHOLIC ACID (URSODEOXYCHOLIC ACID) [Concomitant]
  6. PROHEPARUM (CHOLINE BITARTRATE, CYANOCOBALAMIN, CYSTEINE, INOSITOL, LIVER HYDROLYSATE) [Concomitant]
  7. CISPLATIN (CISPLATIN) [Suspect]
     Active Substance: CISPLATIN
     Indication: CERVIX CARCINOMA
     Route: 041
     Dates: start: 20141126, end: 20141126
  8. LOSARTAN POTASSIUM (LOSARTAN POTASSIUM) [Concomitant]
     Active Substance: LOSARTAN POTASSIUM
  9. FOSAPREPITANT MEGLUMINE [Suspect]
     Active Substance: FOSAPREPITANT
     Indication: PREMEDICATION
     Route: 041
     Dates: start: 20141126, end: 20141126
  10. DEXART (DEXAMETHASONE SODIUM PHOSPHATE) [Concomitant]

REACTIONS (3)
  - Atrial fibrillation [None]
  - Blood pressure diastolic decreased [None]
  - Supraventricular extrasystoles [None]

NARRATIVE: CASE EVENT DATE: 20141126
